FAERS Safety Report 21656008 (Version 1)
Quarter: 2022Q4

REPORT INFORMATION
  Report Type: Spontaneous
  Country: US (occurrence: US)
  Receive Date: 20221129
  Receipt Date: 20221129
  Transmission Date: 20230113
  Serious: No
  Sender: FDA-Public Use
  Company Number: US-Millicent Holdings Ltd.-MILL20220369

PATIENT
  Age: 61 Year
  Sex: Female

DRUGS (2)
  1. FEMRING [Suspect]
     Active Substance: ESTRADIOL ACETATE
     Indication: Product used for unknown indication
     Dosage: 0.05 MG / DAY
     Route: 067
  2. FEMRING [Suspect]
     Active Substance: ESTRADIOL ACETATE
     Dosage: 0.05 MG / DAY
     Route: 067

REACTIONS (4)
  - Sexual dysfunction [Not Recovered/Not Resolved]
  - Hot flush [Not Recovered/Not Resolved]
  - Drug ineffective [Not Recovered/Not Resolved]
  - Inappropriate schedule of product administration [Unknown]

NARRATIVE: CASE EVENT DATE: 20220101
